FAERS Safety Report 5444796-9 (Version None)
Quarter: 2007Q3

REPORT INFORMATION
  Report Type: 
  Country: None (occurrence: None)
  Receive Date: 20070906
  Receipt Date: 20070320
  Transmission Date: 20080115
  Serious: No
  Sender: FDA-Public Use
  Company Number: A0643905A

PATIENT
  Age: 81 Year
  Sex: Male

DRUGS (10)
  1. REQUIP [Suspect]
     Indication: RESTLESS LEGS SYNDROME
     Dosage: 2MG PER DAY
     Route: 048
  2. SIMVASTATIN [Concomitant]
  3. TOPROL-XL [Concomitant]
  4. LISINOPRIL [Concomitant]
  5. GLIBURIDE [Concomitant]
  6. METFORMIN HCL [Concomitant]
  7. UNKNOWN MEDICATION [Concomitant]
  8. DIGOXIN [Concomitant]
  9. WARFARIN SODIUM [Concomitant]
  10. ASPIRIN [Concomitant]

REACTIONS (1)
  - DIARRHOEA [None]
